FAERS Safety Report 13039807 (Version 1)
Quarter: 2016Q4

REPORT INFORMATION
  Report Type: Spontaneous
  Country: US (occurrence: US)
  Receive Date: 20161219
  Receipt Date: 20161219
  Transmission Date: 20170207
  Serious: No
  Sender: FDA-Public Use
  Company Number: US-ACTELION-A-US2016-141706

PATIENT
  Age: 56 Year
  Sex: Female

DRUGS (2)
  1. UPTRAVI [Suspect]
     Active Substance: SELEXIPAG
     Indication: PULMONARY ARTERIAL HYPERTENSION
     Dosage: 400 MCG, BID
     Route: 048
     Dates: start: 20160812
  2. UPTRAVI [Suspect]
     Active Substance: SELEXIPAG
     Dosage: 400 MG, TID
     Route: 048

REACTIONS (2)
  - Headache [Unknown]
  - Pain in jaw [Unknown]
